FAERS Safety Report 12682641 (Version 3)
Quarter: 2016Q4

REPORT INFORMATION
  Report Type: Report from Study
  Country: US (occurrence: US)
  Receive Date: 20160825
  Receipt Date: 20161107
  Transmission Date: 20170207
  Serious: No
  Sender: FDA-Public Use
  Company Number: US-ALEXION-A201606095

PATIENT
  Age: 19 Year
  Sex: Female

DRUGS (5)
  1. SOLIRIS [Suspect]
     Active Substance: ECULIZUMAB
     Dosage: 900 MG, Q2W
     Route: 042
     Dates: start: 20121219
  2. SOLIRIS [Suspect]
     Active Substance: ECULIZUMAB
     Dosage: 600 MG, UNK
     Route: 042
     Dates: start: 20161024
  3. SOLIRIS [Suspect]
     Active Substance: ECULIZUMAB
     Indication: PAROXYSMAL NOCTURNAL HAEMOGLOBINURIA
     Dosage: 900 MG, UNK
     Route: 042
  4. SOLIRIS [Suspect]
     Active Substance: ECULIZUMAB
     Dosage: 300 MG, UNK
     Route: 042
  5. SOLIRIS [Suspect]
     Active Substance: ECULIZUMAB
     Dosage: 900 MG, Q2W
     Route: 042
     Dates: end: 20161024

REACTIONS (7)
  - Nausea [Unknown]
  - Sinusitis [Not Recovered/Not Resolved]
  - Palpitations [Unknown]
  - Incorrect dose administered [Unknown]
  - White blood cell count decreased [Unknown]
  - Contusion [Unknown]
  - Hot flush [Unknown]

NARRATIVE: CASE EVENT DATE: 20121219
